FAERS Safety Report 8531027-6 (Version None)
Quarter: 2012Q3

REPORT INFORMATION
  Report Type: 
  Country: None (occurrence: None)
  Receive Date: 20120723
  Receipt Date: 20120712
  Transmission Date: 20120928
  Serious: Yes (Other)
  Sender: FDA-Public Use
  Company Number: US-CELGENEUS-163-21880-12071532

PATIENT

DRUGS (5)
  1. BENDAMUSTINE HYDROCHLORIDE [Suspect]
     Indication: MULTIPLE MYELOMA
     Dosage: 75 OR 100MG/M2
     Route: 041
  2. GASTROPROTECTANT [Concomitant]
     Route: 065
  3. ASPIRIN [Concomitant]
     Route: 065
  4. REVLIMID [Suspect]
     Indication: MULTIPLE MYELOMA
     Dosage: 5 OR 10MG
     Route: 048
  5. DEXAMETHASONE [Suspect]
     Indication: MULTIPLE MYELOMA
     Route: 065

REACTIONS (16)
  - ELECTROCARDIOGRAM QT PROLONGED [None]
  - ASTHENIA [None]
  - ARTHRALGIA [None]
  - THROMBOCYTOPENIA [None]
  - LEUKOPENIA [None]
  - DEHYDRATION [None]
  - FEBRILE NEUTROPENIA [None]
  - HYPERGLYCAEMIA [None]
  - NAUSEA [None]
  - HYPOKALAEMIA [None]
  - LETHARGY [None]
  - DIARRHOEA [None]
  - PNEUMONIA [None]
  - NEUTROPENIA [None]
  - HYPOCALCAEMIA [None]
  - ATRIAL FIBRILLATION [None]
